FAERS Safety Report 18411059 (Version 2)
Quarter: 2020Q4

REPORT INFORMATION
  Report Type: Spontaneous
  Country: CN (occurrence: CN)
  Receive Date: 20201021
  Receipt Date: 20201106
  Transmission Date: 20210114
  Serious: Yes (Other)
  Sender: FDA-Public Use
  Company Number: CN-UCBSA-2019052324

PATIENT
  Sex: Female
  Weight: 52.5 kg

DRUGS (2)
  1. CIMZIA [Suspect]
     Active Substance: CERTOLIZUMAB PEGOL
     Indication: OFF LABEL USE
  2. CIMZIA [Suspect]
     Active Substance: CERTOLIZUMAB PEGOL
     Indication: ANKYLOSING SPONDYLITIS
     Dosage: ONCE EVERY WEEK OR TWO, ONE VIAL EVERY TIME
     Route: 058
     Dates: start: 20191119, end: 202006

REACTIONS (4)
  - Maternal exposure during breast feeding [Unknown]
  - Off label use [Unknown]
  - Umbilical cord around neck [Unknown]
  - Maternal exposure during pregnancy [Unknown]

NARRATIVE: CASE EVENT DATE: 20191119
